FAERS Safety Report 20744941 (Version 3)
Quarter: 2022Q3

REPORT INFORMATION
  Report Type: Spontaneous
  Country: US (occurrence: US)
  Receive Date: 20220425
  Receipt Date: 20220713
  Transmission Date: 20221027
  Serious: Yes (Other)
  Sender: FDA-Public Use
  Company Number: US-PFIZER INC-202200606215

PATIENT
  Age: 68 Year
  Sex: Female

DRUGS (1)
  1. XELJANZ XR [Suspect]
     Active Substance: TOFACITINIB CITRATE
     Dosage: 11 MG

REACTIONS (7)
  - Limb discomfort [Unknown]
  - General physical health deterioration [Unknown]
  - Seizure [Unknown]
  - Product dose omission issue [Unknown]
  - Muscular weakness [Unknown]
  - Cardiac disorder [Unknown]
  - Drug ineffective [Unknown]
